FAERS Safety Report 6539049-1 (Version None)
Quarter: 2010Q1

REPORT INFORMATION
  Report Type: 
  Country: None (occurrence: None)
  Receive Date: 20100108
  Receipt Date: 20091230
  Transmission Date: 20100710
  Serious: Yes (Other)
  Sender: FDA-Public Use
  Company Number: 2009-04700

PATIENT
  Age: 56 Year
  Sex: Male

DRUGS (2)
  1. VELCADE [Suspect]
     Indication: MULTIPLE MYELOMA
     Dosage: 2.3 MG, INTRAVENOUS
     Route: 042
     Dates: start: 20080721, end: 20080724
  2. DEXAMETHASONE TAB [Concomitant]

REACTIONS (2)
  - ASCITES [None]
  - CHOLECYSTITIS [None]
